FAERS Safety Report 14492482 (Version 3)
Quarter: 2019Q2

REPORT INFORMATION
  Report Type: Spontaneous
  Country: US (occurrence: US)
  Receive Date: 20180206
  Receipt Date: 20190426
  Transmission Date: 20190711
  Serious: No
  Sender: FDA-Public Use
  Company Number: US-TAKEDA-2018TUS002475

PATIENT
  Sex: Female
  Weight: 54.42 kg

DRUGS (3)
  1. COLCRYS [Suspect]
     Active Substance: COLCHICINE
     Dosage: 0.6 MG, QD
     Route: 048
  2. COLCRYS [Suspect]
     Active Substance: COLCHICINE
     Dosage: 1.2 MG, QD
     Route: 048
  3. COLCRYS [Suspect]
     Active Substance: COLCHICINE
     Indication: FAMILIAL MEDITERRANEAN FEVER
     Dosage: UNK
     Route: 065
     Dates: start: 20190314

REACTIONS (2)
  - Diarrhoea [Recovering/Resolving]
  - Hair disorder [Unknown]

NARRATIVE: CASE EVENT DATE: 2017
